FAERS Safety Report 7734337-5 (Version None)
Quarter: 2011Q3

REPORT INFORMATION
  Report Type: 
  Country: None (occurrence: None)
  Receive Date: 20110901
  Receipt Date: 20110825
  Transmission Date: 20111222
  Serious: Yes (Hospitalization, Other)
  Sender: FDA-Public Use
  Company Number: 201111099

PATIENT
  Sex: Male

DRUGS (3)
  1. CLONIDINE INTRATHECAL [Concomitant]
  2. LIORESAL [Suspect]
     Indication: MUSCLE SPASTICITY
     Dosage: MCG, DAILY, INTRATHECAL
     Route: 037
  3. DILAUDID [Concomitant]

REACTIONS (3)
  - INFECTION [None]
  - OEDEMA PERIPHERAL [None]
  - CELLULITIS [None]
